FAERS Safety Report 6067398-2 (Version None)
Quarter: 2009Q1

REPORT INFORMATION
  Report Type: 
  Country: None (occurrence: None)
  Receive Date: 20090205
  Receipt Date: 20090130
  Transmission Date: 20090719
  Serious: Yes (Hospitalization)
  Sender: FDA-Public Use
  Company Number: JP-EISAI MEDICAL RESEARCH-E2020-04048-SPO-JP

PATIENT
  Age: 74 Year
  Sex: Male

DRUGS (7)
  1. ARICEPT [Suspect]
     Indication: DEMENTIA ALZHEIMER'S TYPE
     Route: 048
     Dates: start: 20081222, end: 20090101
  2. ARICEPT [Suspect]
     Route: 048
     Dates: start: 20090130
  3. CINALONG [Concomitant]
     Route: 048
     Dates: start: 20081222
  4. ACECOL [Concomitant]
     Route: 048
     Dates: start: 20081222
  5. VALERIN [Concomitant]
     Route: 048
     Dates: start: 20081222
  6. SYMMETREL [Concomitant]
     Route: 048
     Dates: start: 20081222
  7. DIOVAN [Concomitant]
     Route: 048
     Dates: start: 20081222

REACTIONS (1)
  - RHABDOMYOLYSIS [None]
